FAERS Safety Report 19700279 (Version 1)
Quarter: 2021Q3

REPORT INFORMATION
  Report Type: Spontaneous
  Country: GB (occurrence: GB)
  Receive Date: 20210813
  Receipt Date: 20210813
  Transmission Date: 20211014
  Serious: Yes (Disabling, Other)
  Sender: FDA-Public Use
  Company Number: GB-PFIZER INC-202101012820

PATIENT
  Age: 44 Year
  Sex: Female
  Weight: 68 kg

DRUGS (2)
  1. MEDROXYPROGESTERONE ACETATE. [Suspect]
     Active Substance: MEDROXYPROGESTERONE ACETATE
     Indication: HEAVY MENSTRUAL BLEEDING
     Dosage: 10 MG, 3X/DAY FOR 21 DAYS THEN 7 DAY BREAK
     Route: 048
     Dates: start: 20200330
  2. NORETHISTERONE [Suspect]
     Active Substance: NORETHINDRONE

REACTIONS (2)
  - Embolic stroke [Recovered/Resolved with Sequelae]
  - Off label use [Unknown]

NARRATIVE: CASE EVENT DATE: 20200330
